FAERS Safety Report 4747710-4 (Version None)
Quarter: 2005Q3

REPORT INFORMATION
  Report Type: 
  Country: None (occurrence: None)
  Receive Date: 20050817
  Receipt Date: 20050817
  Transmission Date: 20060218
  Serious: Yes (Hospitalization)
  Sender: FDA-Public Use
  Company Number: None

PATIENT
  Sex: Male
  Weight: 74 kg

DRUGS (1)
  1. ABACAVIR 20 MG = 1 ML GLAXO [Suspect]
     Indication: HIV INFECTION
     Dosage: 300 MG BID ORAL
     Route: 048
     Dates: start: 20050803, end: 20050808

REACTIONS (4)
  - DYSPNOEA [None]
  - LUNG INFILTRATION [None]
  - PYREXIA [None]
  - RASH [None]
